FAERS Safety Report 7841112-X (Version None)
Quarter: 2011Q4

REPORT INFORMATION
  Report Type: 
  Country: None (occurrence: None)
  Receive Date: 20111020
  Receipt Date: 20111004
  Transmission Date: 20120403
  Serious: Yes (Disabling, Other)
  Sender: FDA-Public Use
  Company Number: 2011MA014913

PATIENT
  Age: 24 Year
  Sex: Female

DRUGS (4)
  1. VALACYCLOVIR [Concomitant]
  2. MEDROXYPROGESTERONE [Concomitant]
  3. CETIRIZINE HYDROCHLORIDE [Suspect]
     Dosage: 10 MG;QD
  4. ALCOHOL [Suspect]
     Indication: ALCOHOL POISONING
     Dosage: PO
     Route: 048

REACTIONS (10)
  - GAIT DISTURBANCE [None]
  - PHARYNGEAL DISORDER [None]
  - DYSKINESIA [None]
  - LACERATION [None]
  - ALCOHOL POISONING [None]
  - GRIMACING [None]
  - DYSTONIA [None]
  - DYSARTHRIA [None]
  - MUSCLE TWITCHING [None]
  - COORDINATION ABNORMAL [None]
